FAERS Safety Report 8911219 (Version 1)
Quarter: 2012Q4

REPORT INFORMATION
  Report Type: Spontaneous
  Country: ZA (occurrence: None)
  Receive Date: 20121113
  Receipt Date: 20121113
  Transmission Date: 20130627
  Serious: Yes (Other)
  Sender: FDA-Public Use
  Company Number: B0842973A

PATIENT
  Age: 14 Year
  Sex: Female

DRUGS (3)
  1. LAMIVUDINE [Suspect]
     Indication: ANTIVIRAL TREATMENT
  2. STAVUDINE [Suspect]
     Indication: ANTIVIRAL TREATMENT
  3. EFAVIRENZ [Suspect]
     Indication: ANTIVIRAL TREATMENT

REACTIONS (3)
  - Immune reconstitution inflammatory syndrome associated tuberculosis [None]
  - Basal ganglia infarction [None]
  - Hydrocephalus [None]
